FAERS Safety Report 20634531 (Version 1)
Quarter: 2022Q1

REPORT INFORMATION
  Report Type: Spontaneous
  Country: US (occurrence: US)
  Receive Date: 20220325
  Receipt Date: 20220325
  Transmission Date: 20220423
  Serious: Yes (Other)
  Sender: FDA-Public Use
  Company Number: US-AUROBINDO-AUR-APL-2022-009853

PATIENT
  Age: 15 Year
  Sex: Male

DRUGS (6)
  1. PREDNISONE [Suspect]
     Active Substance: PREDNISONE
     Indication: Chronic granulomatous disease
     Dosage: UNK
     Route: 065
  2. INFLIXIMAB [Concomitant]
     Active Substance: INFLIXIMAB
     Indication: Chronic granulomatous disease
     Dosage: UNK
     Route: 065
  3. INTERFERON GAMMA-1B [Concomitant]
     Active Substance: INTERFERON GAMMA-1B
     Indication: Antifungal prophylaxis
     Dosage: UNK
     Route: 065
  4. AMOXICILLIN [Concomitant]
     Active Substance: AMOXICILLIN
     Indication: Helicobacter infection
     Dosage: UNK
     Route: 065
  5. LANSOPRAZOLE [Concomitant]
     Active Substance: LANSOPRAZOLE
     Indication: Helicobacter infection
     Dosage: UNK
     Route: 065
  6. CLARITHROMYCIN [Concomitant]
     Active Substance: CLARITHROMYCIN
     Indication: Helicobacter infection
     Dosage: UNK
     Route: 065

REACTIONS (3)
  - Pneumonia klebsiella [Unknown]
  - Staphylococcal infection [Unknown]
  - Drug ineffective [Unknown]
